FAERS Safety Report 9836856 (Version 2)
Quarter: 2014Q2

REPORT INFORMATION
  Report Type: Spontaneous
  Country: US (occurrence: None)
  Receive Date: 20131205
  Receipt Date: 20140416
  Transmission Date: 20141212
  Serious: Yes (Other)
  Sender: FDA-Public Use
  Company Number: 163-POMAL-13110543

PATIENT
  Age: 52 Year
  Sex: Female
  Weight: 90.7 kg

DRUGS (16)
  1. POMALYST [Suspect]
     Indication: PLASMA CELL MYELOMA
     Dosage: 1 IN 1 D
     Route: 048
     Dates: start: 20030807
  2. METFORMIN [Concomitant]
  3. ALENDRONATE [Concomitant]
  4. ATENOLOL [Concomitant]
  5. CALCIUM [Concomitant]
  6. HYDROXYCHLOROQUINE [Concomitant]
  7. NASONEX [Concomitant]
  8. NEXIUM [Concomitant]
  9. POTASSIUM CHLORIDE [Concomitant]
  10. DYAZIDE [Concomitant]
  11. ZYRTEC [Concomitant]
  12. CARFILZOMIB [Concomitant]
  13. DEXAMETHASONE [Concomitant]
  14. AFLURIA [Concomitant]
  15. NORMAL SALINE FLUSH [Concomitant]
  16. FILGRASTIM [Concomitant]

REACTIONS (2)
  - Blood glucose increased [None]
  - Neutropenia [None]
